FAERS Safety Report 25385184 (Version 1)
Quarter: 2025Q2

REPORT INFORMATION
  Report Type: Spontaneous
  Country: US (occurrence: None)
  Receive Date: 20250531
  Receipt Date: 20250531
  Transmission Date: 20250716
  Serious: Yes (Hospitalization)
  Sender: FDA-CTU
  Company Number: None

PATIENT
  Sex: Female

DRUGS (11)
  1. ADALIMUMAB-FKJP [Suspect]
     Active Substance: ADALIMUMAB-FKJP
     Indication: Psoriatic arthropathy
     Dosage: FREQUENCY : WEEKLY;?
     Route: 058
     Dates: start: 20250513
  2. CALCITRIOL [Concomitant]
     Active Substance: CALCITRIOL
  3. CALCIUM 500 [Concomitant]
  4. CITALOPRAM [Concomitant]
     Active Substance: CITALOPRAM
  5. ESTRADIOL [Concomitant]
     Active Substance: ESTRADIOL
  6. FOLATE SODIUM [Concomitant]
     Active Substance: FOLATE SODIUM
  7. HUMIRA [Concomitant]
     Active Substance: ADALIMUMAB
  8. MAGNESIUM [Concomitant]
     Active Substance: MAGNESIUM
  9. MULTI-VITAMN [Concomitant]
  10. PROGESTERONE [Concomitant]
     Active Substance: PROGESTERONE
  11. ROSUVASTATIN [Concomitant]
     Active Substance: ROSUVASTATIN

REACTIONS (1)
  - Spinal operation [None]
